FAERS Safety Report 7861401-2 (Version None)
Quarter: 2011Q4

REPORT INFORMATION
  Report Type: 
  Country: None (occurrence: None)
  Receive Date: 20111027
  Receipt Date: 20111018
  Transmission Date: 20120403
  Serious: Yes (Death)
  Sender: FDA-Public Use
  Company Number: JP-ACTELION-A-CH2010-35505

PATIENT
  Sex: Male
  Weight: 59 kg

DRUGS (9)
  1. ASPIRIN [Concomitant]
  2. TRACLEER [Suspect]
     Indication: PULMONARY HYPERTENSION
     Dosage: 62.5 MG, BID
     Route: 048
     Dates: start: 20090506, end: 20090521
  3. DIURETICS [Concomitant]
  4. CARVEDILOL [Concomitant]
  5. DIGOXIN [Concomitant]
  6. LEVOTHYROXINE SODIUM [Concomitant]
  7. BERAPROST SODIUM [Concomitant]
  8. TRACLEER [Suspect]
     Dosage: 31.25 MG, BID
     Route: 048
     Dates: start: 20090416, end: 20090505
  9. OXYGEN [Concomitant]

REACTIONS (6)
  - PULMONARY HYPERTENSION [None]
  - ALANINE AMINOTRANSFERASE INCREASED [None]
  - GENERALISED OEDEMA [None]
  - RESPIRATORY DISORDER [None]
  - LIVER FUNCTION TEST ABNORMAL [None]
  - ASPARTATE AMINOTRANSFERASE INCREASED [None]
